FAERS Safety Report 9658078 (Version 2)
Quarter: 2013Q4

REPORT INFORMATION
  Report Type: Spontaneous
  Country: FR (occurrence: FR)
  Receive Date: 20131030
  Receipt Date: 20131030
  Transmission Date: 20140711
  Serious: Yes (Hospitalization, Other)
  Sender: FDA-Public Use
  Company Number: ALCN2013FR003972

PATIENT
  Age: 71 Year
  Sex: Female

DRUGS (8)
  1. TRAVATAN [Suspect]
     Route: 047
  2. LUCENTIS [Suspect]
     Indication: AGE-RELATED MACULAR DEGENERATION
     Dosage: 10 MG/ML
     Route: 031
  3. CARTEOL [Suspect]
     Route: 047
  4. ALDACTONE [Suspect]
     Dosage: 75 MG/DAY
  5. KIVEXA [Suspect]
     Indication: HIV INFECTION
     Dosage: LONG-TERM
  6. SUSTIVA [Suspect]
     Indication: HIV INFECTION
     Dosage: LONG-TERM
  7. MONO TILDIEM [Suspect]
     Dosage: 300 MG/DAY
  8. CRESTOR [Suspect]
     Dosage: 5 MG

REACTIONS (1)
  - Hypertrophic cardiomyopathy [Not Recovered/Not Resolved]
